FAERS Safety Report 25312571 (Version 1)
Quarter: 2025Q2

REPORT INFORMATION
  Report Type: Report from Study
  Country: US (occurrence: US)
  Receive Date: 20250514
  Receipt Date: 20250514
  Transmission Date: 20250717
  Serious: Yes (Other)
  Sender: ABBVIE
  Company Number: US-ABBVIE-6279605

PATIENT
  Age: 72 Year
  Sex: Male

DRUGS (10)
  1. IMBRUVICA [Suspect]
     Active Substance: IBRUTINIB
     Indication: Chronic lymphocytic leukaemia
     Route: 048
  2. GLIPIZIDE XL [Concomitant]
     Active Substance: GLIPIZIDE
     Indication: Product used for unknown indication
  3. LOSARTAN POTASSIUM [Concomitant]
     Active Substance: LOSARTAN POTASSIUM
     Indication: Product used for unknown indication
  4. BASAGLAR KWIKPEN [Concomitant]
     Active Substance: INSULIN GLARGINE
     Indication: Product used for unknown indication
  5. WELCHOL [Concomitant]
     Active Substance: COLESEVELAM HYDROCHLORIDE
     Indication: Product used for unknown indication
  6. COLCHICINE [Concomitant]
     Active Substance: COLCHICINE
     Indication: Product used for unknown indication
  7. PRALUENT [Concomitant]
     Active Substance: ALIROCUMAB
     Indication: Product used for unknown indication
  8. VITAMIN B COMPLEX [Concomitant]
     Active Substance: CYANOCOBALAMIN\DEXPANTHENOL\NIACINAMIDE\PYRIDOXINE HYDROCHLORIDE\RIBOFLAVIN 5^-PHOSPHATE SODIUM\THIA
     Indication: Product used for unknown indication
  9. NOVOLOG [Concomitant]
     Active Substance: INSULIN ASPART
     Indication: Product used for unknown indication
  10. TRADJENTA [Concomitant]
     Active Substance: LINAGLIPTIN
     Indication: Product used for unknown indication

REACTIONS (2)
  - Medical procedure [Unknown]
  - Somnolence [Unknown]

NARRATIVE: CASE EVENT DATE: 20250501
